FAERS Safety Report 8476470-9 (Version None)
Quarter: 2012Q2

REPORT INFORMATION
  Report Type: 
  Country: None (occurrence: None)
  Receive Date: 20120628
  Receipt Date: 20120618
  Transmission Date: 20120825
  Serious: Yes (Death, Other)
  Sender: FDA-Public Use
  Company Number: AU-WATSON-2012-11338

PATIENT
  Age: 24 Year
  Sex: Male

DRUGS (4)
  1. TEMAZEPAM [Suspect]
     Dosage: UNK
     Route: 065
  2. HEROIN [Suspect]
     Indication: DRUG ABUSE
     Dosage: UNK
     Route: 042
  3. DIAZEPAM [Suspect]
     Indication: DRUG ABUSE
     Dosage: UNK
     Route: 065
  4. OXAZEPAM [Suspect]
     Indication: DRUG ABUSE
     Dosage: UNK
     Route: 065

REACTIONS (2)
  - TOXICITY TO VARIOUS AGENTS [None]
  - DRUG ABUSE [None]
